FAERS Safety Report 19630523 (Version 3)
Quarter: 2021Q4

REPORT INFORMATION
  Report Type: Spontaneous
  Country: US (occurrence: US)
  Receive Date: 20210729
  Receipt Date: 20211014
  Transmission Date: 20220303
  Serious: No
  Sender: FDA-Public Use
  Company Number: US-PFIZER INC-2021831252

PATIENT
  Age: 7 Year
  Sex: Female
  Weight: 40.82 kg

DRUGS (1)
  1. GENOTROPIN [Suspect]
     Active Substance: SOMATROPIN
     Dosage: 0.6 MG

REACTIONS (4)
  - Device use error [Unknown]
  - Drug dose omission by device [Unknown]
  - Device breakage [Unknown]
  - Expired device used [Unknown]

NARRATIVE: CASE EVENT DATE: 20210601
